FAERS Safety Report 9091146 (Version 1)
Quarter: 2013Q1

REPORT INFORMATION
  Report Type: Spontaneous
  Country: GB (occurrence: GB)
  Receive Date: 20130131
  Receipt Date: 20130131
  Transmission Date: 20140127
  Serious: Yes (Other)
  Sender: FDA-Public Use
  Company Number: GB-ELI_LILLY_AND_COMPANY-GB201301007665

PATIENT
  Age: 16 Year
  Sex: Male

DRUGS (2)
  1. STRATTERA [Suspect]
  2. MELATONIN [Concomitant]

REACTIONS (2)
  - Osteosarcoma [Unknown]
  - Heart rate increased [Unknown]
